FAERS Safety Report 5725715-4 (Version None)
Quarter: 2008Q2

REPORT INFORMATION
  Report Type: 
  Country: None (occurrence: None)
  Receive Date: 20080429
  Receipt Date: 20080421
  Transmission Date: 20081010
  Serious: Yes (Other)
  Sender: FDA-Public Use
  Company Number: CERZ-1000175

PATIENT
  Age: 57 Year
  Sex: Female
  Weight: 46.3 kg

DRUGS (3)
  1. CEREZYME [Suspect]
     Indication: GAUCHER'S DISEASE
     Dosage: 800 U, Q2W, INTRAVENOUS
     Route: 042
     Dates: start: 19970630
  2. UNSPECIFIED DIABETIC MEDICATION [Concomitant]
  3. UNSPECIFIED ANTIHYPERTENSIVE MEDICATION [Concomitant]

REACTIONS (4)
  - ABDOMINAL PAIN [None]
  - BLOOD PRESSURE DIASTOLIC INCREASED [None]
  - ESCHERICHIA URINARY TRACT INFECTION [None]
  - KIDNEY INFECTION [None]
